FAERS Safety Report 7865683-2 (Version None)
Quarter: 2011Q4

REPORT INFORMATION
  Report Type: 
  Country: None (occurrence: None)
  Receive Date: 20111028
  Receipt Date: 20110207
  Transmission Date: 20120403
  Serious: No
  Sender: FDA-Public Use
  Company Number: US-GLAXOSMITHKLINE-A0912262A

PATIENT
  Age: 70 Year
  Sex: Male

DRUGS (5)
  1. ALBUTEROL [Concomitant]
  2. ADVAIR DISKUS 100/50 [Suspect]
     Indication: CHRONIC OBSTRUCTIVE PULMONARY DISEASE
     Route: 055
     Dates: start: 20100501, end: 20100501
  3. COMBIVENT [Concomitant]
  4. PREDNISONE [Concomitant]
  5. ACE INHIBITOR [Concomitant]

REACTIONS (1)
  - ORAL MUCOSAL ERUPTION [None]
